FAERS Safety Report 5307608-X (Version None)
Quarter: 2007Q2

REPORT INFORMATION
  Report Type: 
  Country: None (occurrence: None)
  Receive Date: 20070425
  Receipt Date: 20070413
  Transmission Date: 20071010
  Serious: Yes (Other)
  Sender: FDA-Public Use
  Company Number: US-PFIZER INC-2007030215

PATIENT
  Sex: Male
  Weight: 118.18 kg

DRUGS (15)
  1. CHANTIX [Suspect]
     Indication: SMOKING CESSATION THERAPY
     Route: 048
     Dates: start: 20070405
  2. MS CONTIN [Concomitant]
  3. DIAZEPAM [Concomitant]
  4. ROZEREM [Concomitant]
  5. PROTONIX [Concomitant]
  6. SEROQUEL [Concomitant]
  7. LISINOPRIL [Concomitant]
  8. OMACOR [Concomitant]
  9. TIZANIDINE HCL [Concomitant]
  10. ACTOS [Concomitant]
  11. METFORMIN HCL [Concomitant]
  12. EFFEXOR [Concomitant]
  13. NIASPAN [Concomitant]
  14. OXYCODONE HCL [Concomitant]
  15. LANTUS [Concomitant]

REACTIONS (1)
  - BLOOD GLUCOSE INCREASED [None]
